FAERS Safety Report 6741616-7 (Version None)
Quarter: 2010Q2

REPORT INFORMATION
  Report Type: 
  Country: None (occurrence: None)
  Receive Date: 20100526
  Receipt Date: 20100514
  Transmission Date: 20101027
  Serious: Yes (Other)
  Sender: FDA-Public Use
  Company Number: US-SANOFI-AVENTIS-2010SA028786

PATIENT
  Age: 67 Year
  Sex: Female
  Weight: 83.44 kg

DRUGS (12)
  1. PLAVIX [Suspect]
     Route: 048
     Dates: start: 20070101
  2. GLIPIZIDE [Concomitant]
  3. QUINAPRIL [Concomitant]
  4. LASIX [Concomitant]
  5. METFORMIN HYDROCHLORIDE [Concomitant]
  6. CALCIUM [Concomitant]
  7. MAGNESIUM [Concomitant]
  8. MULTI-VITAMINS [Concomitant]
  9. LIPITOR [Concomitant]
  10. CLONAZEPAM [Concomitant]
  11. TRAZODONE HCL [Concomitant]
  12. VITAMIN D [Concomitant]
     Dosage: DOSE:5000 UNIT(S)

REACTIONS (6)
  - CARDIAC FAILURE CONGESTIVE [None]
  - EPISTAXIS [None]
  - EYE HAEMORRHAGE [None]
  - LOSS OF CONSCIOUSNESS [None]
  - OFF LABEL USE [None]
  - VISION BLURRED [None]
